FAERS Safety Report 22243073 (Version 2)
Quarter: 2023Q2

REPORT INFORMATION
  Report Type: Report from Study
  Country: US (occurrence: US)
  Receive Date: 20230424
  Receipt Date: 20230612
  Transmission Date: 20230721
  Serious: Yes (Congenital Anomaly, Other)
  Sender: FDA-Public Use
  Company Number: US-GLAXOSMITHKLINE-US2023AMR055126

PATIENT

DRUGS (21)
  1. BELIMUMAB [Suspect]
     Active Substance: BELIMUMAB
     Indication: Lupus nephritis
     Dosage: 200 MG, WE
     Route: 064
     Dates: start: 20171115, end: 20230212
  2. DIPHTHERIA AND TETANUS TOXOIDS AND PERTUSSIS VACCINE [Suspect]
     Active Substance: DIPHTHERIA AND TETANUS TOXOIDS AND PERTUSSIS VACCINE
     Indication: Prophylaxis
     Route: 064
     Dates: start: 20230112
  3. INFLUENZA VIRUS VACCINE [Suspect]
     Active Substance: INFLUENZA VIRUS VACCINE
     Indication: Prophylaxis
     Route: 064
     Dates: start: 20221015
  4. ACYCLOVIR [Suspect]
     Active Substance: ACYCLOVIR
     Indication: Antiviral prophylaxis
     Dosage: 800 MG, QD
     Route: 064
     Dates: start: 20220613, end: 20230112
  5. ACYCLOVIR [Suspect]
     Active Substance: ACYCLOVIR
     Dosage: 1200 MG, QD
     Route: 048
     Dates: start: 20220113, end: 20230212
  6. AMITRIPTYLINE [Suspect]
     Active Substance: AMITRIPTYLINE
     Indication: Neuropathy peripheral
     Dosage: 10 MG, QD
     Route: 064
     Dates: start: 20220613, end: 20230212
  7. ASPIRIN [Suspect]
     Active Substance: ASPIRIN
     Indication: Pre-eclampsia
     Dosage: 162 MG, QD
     Route: 064
     Dates: start: 20220613, end: 20230212
  8. CALCIUM [Suspect]
     Active Substance: CALCIUM
     Indication: Osteopenia
     Dosage: 600 MG, BID
     Route: 064
     Dates: start: 20220613, end: 20230212
  9. HYDROXYCHLOROQUINE SULFATE [Suspect]
     Active Substance: HYDROXYCHLOROQUINE SULFATE
     Indication: Lupus nephritis
     Dosage: 400 MG, QD
     Route: 064
     Dates: start: 20020701, end: 20230212
  10. LABETALOL [Suspect]
     Active Substance: LABETALOL\LABETALOL HYDROCHLORIDE
     Indication: Hypertension
     Dosage: 400 MG, QD
     Route: 064
     Dates: start: 20220613, end: 20221209
  11. LABETALOL [Suspect]
     Active Substance: LABETALOL\LABETALOL HYDROCHLORIDE
     Dosage: 300 MG, QD
     Route: 064
     Dates: start: 20221210, end: 20230212
  12. MAGNESIUM [Suspect]
     Active Substance: MAGNESIUM
     Indication: Blood magnesium decreased
     Dosage: 131 MG, QD
     Route: 048
     Dates: start: 20220613, end: 20230212
  13. MODERNA COVID-19 VACCINE [Suspect]
     Active Substance: ELASOMERAN
     Indication: Immunisation
     Dosage: UNK, 1 SHOT
     Route: 064
     Dates: start: 20221001, end: 20221001
  14. NIFEDIPINE [Suspect]
     Active Substance: NIFEDIPINE
     Indication: Hypertension
     Dosage: 90 MG, QD
     Route: 064
     Dates: start: 20220613, end: 20230212
  15. NITROFURANTOIN [Suspect]
     Active Substance: NITROFURANTOIN
     Indication: Prophylaxis urinary tract infection
     Dosage: 100 MG, QD
     Route: 064
     Dates: start: 20221010, end: 20230212
  16. FISH OIL\OMEGA-3 FATTY ACIDS [Suspect]
     Active Substance: FISH OIL\OMEGA-3 FATTY ACIDS
     Indication: Dry eye
     Dosage: 1280 MG, QD
     Route: 064
     Dates: start: 20220613, end: 20230212
  17. OMEPRAZOLE [Suspect]
     Active Substance: OMEPRAZOLE
     Indication: Dyspepsia
     Dosage: 20 MG, QD
     Route: 064
     Dates: start: 20220613, end: 20230212
  18. PNEUMOCOCCAL VACCINE POLYVALENT [Suspect]
     Active Substance: PNEUMOCOCCAL VACCINE POLYVALENT
     Indication: Dyspepsia
     Dosage: UNK, 1  SHOT
     Route: 064
     Dates: start: 20220610, end: 20220610
  19. PREDNISONE [Suspect]
     Active Substance: PREDNISONE
     Indication: Lupus nephritis
     Dosage: 10 MG, QD
     Route: 064
     Dates: start: 20010107, end: 20230212
  20. TUMS [Suspect]
     Active Substance: CALCIUM CARBONATE
     Indication: Dyspepsia
     Dosage: 1 DF, QD
     Route: 064
     Dates: start: 20221130, end: 20230212
  21. VITAMIN D3 [Suspect]
     Active Substance: CHOLECALCIFEROL
     Indication: Osteopenia
     Dosage: 5000 IU, QD
     Route: 064
     Dates: start: 20220613, end: 20230212

REACTIONS (6)
  - Neonatal lupus erythematosus [Unknown]
  - Thrombocytopenia [Unknown]
  - Rash [Unknown]
  - Adrenoleukodystrophy [Unknown]
  - Low birth weight baby [Unknown]
  - Foetal exposure during pregnancy [Unknown]

NARRATIVE: CASE EVENT DATE: 20230101
